FAERS Safety Report 8002971-3 (Version None)
Quarter: 2011Q4

REPORT INFORMATION
  Report Type: 
  Country: None (occurrence: None)
  Receive Date: 20111222
  Receipt Date: 20110613
  Transmission Date: 20120403
  Serious: No
  Sender: FDA-Public Use
  Company Number: US-GLAXOSMITHKLINE-A0931315A

PATIENT
  Sex: Male

DRUGS (4)
  1. AVODART [Suspect]
     Indication: BENIGN PROSTATIC HYPERPLASIA
     Dosage: .5MG PER DAY
     Route: 048
     Dates: start: 20110301
  2. FISH OIL [Concomitant]
  3. NAPROXEN (ALEVE) [Concomitant]
  4. ANTIBIOTIC [Concomitant]

REACTIONS (2)
  - IRRITABILITY [None]
  - HOT FLUSH [None]
